FAERS Safety Report 6259784-2 (Version None)
Quarter: 2009Q3

REPORT INFORMATION
  Report Type: 
  Country: None (occurrence: None)
  Receive Date: 20090708
  Receipt Date: 20090702
  Transmission Date: 20100115
  Serious: Yes (Other)
  Sender: FDA-Public Use
  Company Number: US-JNJFOC-20090701390

PATIENT
  Sex: Male
  Weight: 77.11 kg

DRUGS (2)
  1. FENTANYL TRANSDERMAL SYSTEM [Suspect]
     Indication: BACK PAIN
     Route: 062
  2. AMBIEN [Concomitant]
     Indication: SLEEP DISORDER
     Route: 048

REACTIONS (7)
  - ARTHRALGIA [None]
  - DYSURIA [None]
  - FATIGUE [None]
  - INCORRECT DRUG ADMINISTRATION DURATION [None]
  - PAIN [None]
  - PROSTATE CANCER [None]
  - WRONG TECHNIQUE IN DRUG USAGE PROCESS [None]
